FAERS Safety Report 9175488 (Version 1)
Quarter: 2013Q1

REPORT INFORMATION
  Report Type: Spontaneous
  Country: US (occurrence: US)
  Receive Date: 20130320
  Receipt Date: 20130320
  Transmission Date: 20140127
  Serious: No
  Sender: FDA-Public Use
  Company Number: US-UPSHER-SMITH LABORATORIES, INC.-13000684

PATIENT
  Sex: Male

DRUGS (4)
  1. JANTOVEN [Suspect]
     Indication: ATRIAL FIBRILLATION
     Dosage: 3 MG, QOD
     Route: 048
     Dates: start: 2012
  2. JANTOVEN [Suspect]
     Dosage: 4 MG, QOD
     Dates: start: 2012
  3. DIGOXIN [Concomitant]
     Indication: ATRIAL FIBRILLATION
     Dosage: UNK
  4. COREG [Concomitant]
     Indication: ATRIAL FIBRILLATION
     Dosage: UNK

REACTIONS (3)
  - International normalised ratio fluctuation [Not Recovered/Not Resolved]
  - Product quality issue [Not Recovered/Not Resolved]
  - Product substitution issue [None]
